FAERS Safety Report 23449080 (Version 3)
Quarter: 2024Q2

REPORT INFORMATION
  Report Type: Spontaneous
  Country: BR (occurrence: BR)
  Receive Date: 20240128
  Receipt Date: 20240622
  Transmission Date: 20240715
  Serious: Yes (Hospitalization, Other)
  Sender: FDA-Public Use
  Company Number: BR-BoehringerIngelheim-2023-BI-266994

PATIENT
  Age: 50 Year
  Sex: Female
  Weight: 75 kg

DRUGS (4)
  1. SPIRIVA RESPIMAT [Suspect]
     Active Substance: TIOTROPIUM BROMIDE
     Indication: Bronchiectasis
     Dosage: INHALATION PUMP?TWO PUFFS A DAY (IN THE EVENING)
     Route: 055
     Dates: start: 2019
  2. SPIRIVA RESPIMAT [Suspect]
     Active Substance: TIOTROPIUM BROMIDE
     Dosage: SHE USES 2 PUFFS, TWICE A DAY: 2 CONSECUTIVE PUFFS IN THE MORNING AND ANOTHER TWO, IN THE SAME WAY,
     Route: 055
  3. SPIRIVA RESPIMAT [Suspect]
     Active Substance: TIOTROPIUM BROMIDE
     Dosage: SHE USES TWO (CONSECUTIVE) PUFFS THREE TIMES A DAY (MORNING, AFTERNOON AND NIGHT
     Dates: start: 2024
  4. BECLOMETHASONE\FORMOTEROL [Concomitant]
     Active Substance: BECLOMETHASONE\FORMOTEROL
     Indication: Bronchiectasis
     Dosage: 100MG/6MG, AEROSOL, TWO PUFFS IN THE MORNING.
     Route: 055
     Dates: start: 2019

REACTIONS (8)
  - Asthmatic crisis [Not Recovered/Not Resolved]
  - Pneumonia [Recovered/Resolved]
  - Intentional product use issue [Not Recovered/Not Resolved]
  - Rheumatoid arthritis [Not Recovered/Not Resolved]
  - Dyspnoea [Not Recovered/Not Resolved]
  - Extra dose administered [Recovered/Resolved]
  - Dyspnoea [Unknown]
  - Fatigue [Unknown]

NARRATIVE: CASE EVENT DATE: 20190101
